FAERS Safety Report 9413402 (Version 1)
Quarter: 2013Q3

REPORT INFORMATION
  Report Type: Spontaneous
  Country: ES (occurrence: None)
  Receive Date: 20130717
  Receipt Date: 20130717
  Transmission Date: 20140515
  Serious: Yes (Life-Threatening)
  Sender: FDA-Public Use
  Company Number: 1794647

PATIENT
  Age: 58 Year
  Sex: Male

DRUGS (5)
  1. DOCETAXEL [Suspect]
     Indication: LUNG CARCINOMA CELL TYPE UNSPECIFIED STAGE I
     Route: 041
  2. DOCETAXEL [Suspect]
     Indication: LUNG CARCINOMA CELL TYPE UNSPECIFIED STAGE I
     Route: 041
  3. CISPLATIN [Suspect]
     Indication: LUNG CARCINOMA CELL TYPE UNSPECIFIED STAGE I
     Route: 041
  4. DEXAMETHASONE [Suspect]
  5. ONDANSETRON [Suspect]

REACTIONS (6)
  - Hypersensitivity [None]
  - Loss of consciousness [None]
  - Convulsion [None]
  - Respiratory failure [None]
  - Hypotension [None]
  - Infusion related reaction [None]
